FAERS Safety Report 13830580 (Version 1)
Quarter: 2017Q3

REPORT INFORMATION
  Report Type: Spontaneous
  Country: US (occurrence: US)
  Receive Date: 20170803
  Receipt Date: 20170803
  Transmission Date: 20171127
  Serious: No
  Sender: FDA-Public Use
  Company Number: US-SA-2017SA091492

PATIENT
  Sex: Female

DRUGS (11)
  1. LOSARTAN. [Concomitant]
     Active Substance: LOSARTAN
     Dosage: STRENGTH: 100 MG
  2. ROSUVASTATIN. [Concomitant]
     Active Substance: ROSUVASTATIN
     Dosage: STRENGTH: 20 MG
  3. VENTOLIN HFA [Concomitant]
     Active Substance: ALBUTEROL SULFATE
  4. AMLODIPINE [Concomitant]
     Active Substance: AMLODIPINE BESYLATE
     Dosage: STRENGTH: 5 MG
  5. METOPROLOL. [Concomitant]
     Active Substance: METOPROLOL
     Dosage: STRENGTH: 50 MG
  6. ALIROCUMAB PREFILLED PEN [Concomitant]
     Active Substance: ALIROCUMAB
     Indication: HYPERLIPIDAEMIA
  7. LEVOTHYROXINE. [Concomitant]
     Active Substance: LEVOTHYROXINE
     Dosage: STRENGTH: 50 MCG
  8. WARFARIN [Concomitant]
     Active Substance: WARFARIN
     Dosage: STRENGTH: 5 MG
  9. DEXILANT [Concomitant]
     Active Substance: DEXLANSOPRAZOLE
     Dosage: STRENGTH: 60 MG
  10. PRALUENT [Suspect]
     Active Substance: ALIROCUMAB
     Indication: HYPERLIPIDAEMIA
     Route: 058
  11. ANORO ELLIPTA [Concomitant]
     Active Substance: UMECLIDINIUM BROMIDE\VILANTEROL TRIFENATATE
     Dosage: 62.5-25

REACTIONS (1)
  - Liver function test increased [Not Recovered/Not Resolved]
